FAERS Safety Report 8820550 (Version 2)
Quarter: 2012Q4

REPORT INFORMATION
  Report Type: 
  Country: US (occurrence: US)
  Receive Date: 20121002
  Receipt Date: 20121004
  Transmission Date: 20130627
  Serious: Yes (Death, Hospitalization)
  Sender: FDA-Public Use
  Company Number: US-ACTELION-A-NJ2012-71158

PATIENT
  Age: 76 Year
  Sex: Female

DRUGS (4)
  1. VELETRI [Suspect]
     Indication: PULMONARY ARTERIAL HYPERTENSION
     Dosage: 28 ng/kg, per min
     Route: 041
     Dates: start: 20110323
  2. DIGOXIN [Concomitant]
  3. SPIRONOLACTONE [Concomitant]
  4. LASIX [Concomitant]

REACTIONS (6)
  - Pulmonary arterial hypertension [Fatal]
  - Condition aggravated [Fatal]
  - Renal failure [Unknown]
  - Bacteraemia [Unknown]
  - Fluid retention [Unknown]
  - Paracentesis [Unknown]
